FAERS Safety Report 18888901 (Version 1)
Quarter: 2021Q1

REPORT INFORMATION
  Report Type: Not Available
  Country: US (occurrence: US)
  Receive Date: 20210212
  Receipt Date: 20210212
  Transmission Date: 20210420
  Serious: No
  Sender: FDA-Public Use
  Company Number: US-NEUROCRINE BIOSCIENCES INC.-2021NBI00534

PATIENT
  Age: 73 Year
  Sex: Male

DRUGS (10)
  1. LOSARTAN POTASSIUM. [Concomitant]
     Active Substance: LOSARTAN POTASSIUM
  2. METOPROLOL SUCCINATE. [Concomitant]
     Active Substance: METOPROLOL SUCCINATE
  3. CARBIDOPA/LEVODOPA [Concomitant]
     Active Substance: CARBIDOPA\LEVODOPA
  4. AMLODIPINE BESYLATE. [Concomitant]
     Active Substance: AMLODIPINE BESYLATE
  5. TOVIAZ [Concomitant]
     Active Substance: FESOTERODINE FUMARATE
  6. ATORVASTATIN CALCIUM. [Concomitant]
     Active Substance: ATORVASTATIN CALCIUM
  7. TAMSULOSIN HYDROCHLORIDE. [Concomitant]
     Active Substance: TAMSULOSIN HYDROCHLORIDE
  8. ONGENTYS [Suspect]
     Active Substance: OPICAPONE
     Indication: PARKINSON^S DISEASE
     Route: 048
     Dates: start: 202011
  9. GOODSENSE ASPIRIN ADULT [Concomitant]
  10. VITAMIN D [Concomitant]
     Active Substance: VITAMIN D NOS

REACTIONS (2)
  - Tremor [Unknown]
  - Anal incontinence [Unknown]

NARRATIVE: CASE EVENT DATE: 202011
